FAERS Safety Report 6210192-X (Version None)
Quarter: 2009Q2

REPORT INFORMATION
  Report Type: 
  Country: None (occurrence: None)
  Receive Date: 20090601
  Receipt Date: 20090519
  Transmission Date: 20091009
  Serious: Yes (Other)
  Sender: FDA-Public Use
  Company Number: CN-BAYER-200919362GPV

PATIENT
  Age: 15 Year
  Sex: Male

DRUGS (1)
  1. ULTRAVIST 370 [Suspect]
     Indication: ARTERIOGRAM
     Dosage: TOTAL DAILY DOSE: 100 ML
     Route: 013

REACTIONS (8)
  - BLOOD CREATINE PHOSPHOKINASE INCREASED [None]
  - CRYING [None]
  - DISORIENTATION [None]
  - DYSPHORIA [None]
  - ELECTROCARDIOGRAM CHANGE [None]
  - HYPERHIDROSIS [None]
  - NAUSEA [None]
  - RESTLESSNESS [None]
